FAERS Safety Report 9750880 (Version 2)
Quarter: 2014Q1

REPORT INFORMATION
  Report Type: Spontaneous
  Country: US (occurrence: US)
  Receive Date: 20131212
  Receipt Date: 20140102
  Transmission Date: 20141002
  Serious: No
  Sender: FDA-Public Use
  Company Number: US-PFIZER INC-2013354462

PATIENT
  Age: 59 Year
  Sex: Female

DRUGS (3)
  1. PRISTIQ [Suspect]
     Indication: MAJOR DEPRESSION
     Dosage: 50 MG, 1X/DAY
     Route: 048
     Dates: start: 20130823, end: 20131009
  2. PRISTIQ [Suspect]
     Indication: DEPRESSION
  3. KLONOPIN [Concomitant]
     Dosage: 0.5 MG, PRN

REACTIONS (1)
  - Headache [Recovered/Resolved]
